FAERS Safety Report 10055646 (Version 3)
Quarter: 2014Q2

REPORT INFORMATION
  Report Type: Spontaneous
  Country: FI (occurrence: FI)
  Receive Date: 20140403
  Receipt Date: 20140408
  Transmission Date: 20141212
  Serious: Yes (Life-Threatening, Hospitalization)
  Sender: FDA-Public Use
  Company Number: FI-ORION CORPORATION ORION PHARMA-ENTC2014-0113

PATIENT
  Age: 77 Year
  Sex: Female

DRUGS (8)
  1. STALEVO [Suspect]
     Dosage: STRENGHT 75/18.5/200MG
     Route: 048
     Dates: start: 201308
  2. THYROXIN [Concomitant]
     Route: 065
  3. KALEORID [Concomitant]
     Route: 065
  4. KEPPRA [Concomitant]
     Route: 065
  5. HYDROCORTISON [Concomitant]
     Route: 065
  6. PANADOL FORTE [Concomitant]
     Route: 065
  7. STESOLID [Concomitant]
     Dosage: PER NEED
     Route: 054
  8. TAFLOTAN [Concomitant]
     Route: 065

REACTIONS (4)
  - Diarrhoea [Recovering/Resolving]
  - Colitis microscopic [Unknown]
  - Blood potassium decreased [Unknown]
  - Urinary tract infection [Unknown]
